FAERS Safety Report 15459269 (Version 1)
Quarter: 2018Q4

REPORT INFORMATION
  Report Type: Spontaneous
  Country: US (occurrence: US)
  Receive Date: 20181003
  Receipt Date: 20181003
  Transmission Date: 20190204
  Serious: Yes (Hospitalization)
  Sender: FDA-Public Use
  Company Number: US-LEXICON PHARMACEUTICALS, INC-18-1606-01203

PATIENT
  Age: 81 Year
  Sex: Female

DRUGS (11)
  1. DOFETILIDE. [Concomitant]
     Active Substance: DOFETILIDE
  2. POTASSIUM [Concomitant]
     Active Substance: POTASSIUM
  3. MAVIK [Concomitant]
     Active Substance: TRANDOLAPRIL
  4. IMODIUM A-D [Concomitant]
     Active Substance: LOPERAMIDE HYDROCHLORIDE
  5. FUROSEMIDE. [Concomitant]
     Active Substance: FUROSEMIDE
  6. TELOTRISTAT ETHYL [Suspect]
     Active Substance: TELOTRISTAT ETHYL
     Indication: NEUROENDOCRINE TUMOUR
  7. CLARITIN [Concomitant]
     Active Substance: LORATADINE
  8. TELOTRISTAT ETHYL [Suspect]
     Active Substance: TELOTRISTAT ETHYL
     Indication: CARCINOID SYNDROME
     Route: 048
     Dates: start: 20180501
  9. OCTREOTIDE ACETATE. [Concomitant]
     Active Substance: OCTREOTIDE ACETATE
  10. MUCINEX [Concomitant]
     Active Substance: GUAIFENESIN
  11. LISINOPRIL. [Concomitant]
     Active Substance: LISINOPRIL

REACTIONS (1)
  - Cardiac valve disease [Recovered/Resolved]

NARRATIVE: CASE EVENT DATE: 201809
